FAERS Safety Report 9889030 (Version 1)
Quarter: 2014Q1

REPORT INFORMATION
  Report Type: Spontaneous
  Country: US (occurrence: None)
  Receive Date: 20140207
  Receipt Date: 20140207
  Transmission Date: 20141002
  Serious: Yes (Hospitalization)
  Sender: FDA-Public Use
  Company Number: UTC-043256

PATIENT
  Age: 51 Year
  Sex: Female
  Weight: 93.18 kg

DRUGS (4)
  1. REMODULIN [Suspect]
     Indication: COR PULMONALE CHRONIC
     Dosage: 51-84 UG/KG (0.036 UG/KG, 1 IN 1 MIN), SUBCUTANEOUS?
     Route: 058
     Dates: start: 20121127
  2. ADCIRCA (TADALAFIL) (UNKNOWN) [Concomitant]
  3. LETAIRIS (AMBRISENTAN) (UNKNOWN) [Concomitant]
  4. COUMADIN (WARFARIN SODIUM) (UNKNOWN) [Concomitant]

REACTIONS (1)
  - Anaemia [None]
